FAERS Safety Report 9177116 (Version 2)
Quarter: 2013Q3

REPORT INFORMATION
  Report Type: Spontaneous
  Country: US (occurrence: None)
  Receive Date: 20120604
  Receipt Date: 20130724
  Transmission Date: 20140515
  Serious: Yes (Other)
  Sender: FDA-Public Use
  Company Number: PHEH2012US009101

PATIENT
  Age: 35 Year
  Sex: Female
  Weight: 74.4 kg

DRUGS (2)
  1. FANAPT [Suspect]
     Indication: PSYCHOTIC DISORDER
     Route: 048
     Dates: start: 20100909
  2. HALOPERIDOL DECANOATE [Concomitant]

REACTIONS (3)
  - Amenorrhoea [None]
  - Breast pain [None]
  - Blood prolactin increased [None]
